FAERS Safety Report 10903907 (Version 1)
Quarter: 2015Q1

REPORT INFORMATION
  Report Type: Spontaneous
  Country: GB (occurrence: GB)
  Receive Date: 20150311
  Receipt Date: 20150311
  Transmission Date: 20150721
  Serious: Yes (Other)
  Sender: FDA-Public Use
  Company Number: GB-AMGEN-GBRSP2015021182

PATIENT
  Age: 66 Year
  Sex: Female
  Weight: 80.74 kg

DRUGS (6)
  1. SPIRIVA [Concomitant]
     Active Substance: TIOTROPIUM BROMIDE MONOHYDRATE
     Route: 048
  2. ONBREZ BREEZHALER [Concomitant]
     Active Substance: INDACATEROL
     Dosage: 800 IU, UNK
  3. PROLIA [Suspect]
     Active Substance: DENOSUMAB
     Indication: PRODUCT USED FOR UNKNOWN INDICATION
     Dosage: 60 MG, Q6MO
     Route: 058
     Dates: start: 20120522
  4. FULTIUM [Concomitant]
  5. INDAPAMIDE. [Concomitant]
     Active Substance: INDAPAMIDE
     Dosage: 2.5 MG, UNK
     Route: 048
  6. LISINOPRIL. [Concomitant]
     Active Substance: LISINOPRIL
     Dosage: 5 MG, UNK
     Route: 048

REACTIONS (1)
  - Exostosis [Not Recovered/Not Resolved]

NARRATIVE: CASE EVENT DATE: 201409
